FAERS Safety Report 10479807 (Version 2)
Quarter: 2014Q4

REPORT INFORMATION
  Report Type: Report from Study
  Country: CO (occurrence: CO)
  Receive Date: 20140928
  Receipt Date: 20141114
  Transmission Date: 20150528
  Serious: Yes (Other)
  Sender: FDA-Public Use
  Company Number: CO-ABBVIE-14K-036-1288132-00

PATIENT
  Age: 66 Year
  Sex: Male
  Weight: 75 kg

DRUGS (5)
  1. HUMIRA [Suspect]
     Active Substance: ADALIMUMAB
     Route: 058
     Dates: start: 20141104
  2. ACETAMINOPHEN. [Concomitant]
     Active Substance: ACETAMINOPHEN
     Indication: PRODUCT USED FOR UNKNOWN INDICATION
  3. UNSPECIFIED MEDICATION FOR ANXIETY [Concomitant]
     Indication: ANXIETY
  4. CALCIUM [Concomitant]
     Active Substance: CALCIUM
     Indication: PRODUCT USED FOR UNKNOWN INDICATION
  5. HUMIRA [Suspect]
     Active Substance: ADALIMUMAB
     Indication: ANKYLOSING SPONDYLITIS
     Route: 058
     Dates: start: 20110302, end: 20140806

REACTIONS (3)
  - Facial bones fracture [Recovered/Resolved]
  - Fall [Not Recovered/Not Resolved]
  - Face injury [Not Recovered/Not Resolved]

NARRATIVE: CASE EVENT DATE: 20140630
